FAERS Safety Report 10384998 (Version 1)
Quarter: 2014Q3

REPORT INFORMATION
  Report Type: Spontaneous
  Country: JP (occurrence: JP)
  Receive Date: 20140814
  Receipt Date: 20140814
  Transmission Date: 20150326
  Serious: Yes (Death, Hospitalization)
  Sender: FDA-Public Use
  Company Number: PHHY2008JP045215

PATIENT
  Age: 80 Year
  Sex: Male

DRUGS (3)
  1. DIOVAN [Suspect]
     Active Substance: VALSARTAN
     Dosage: 80 MG, BID
     Dates: start: 20021108
  2. NORVASC [Concomitant]
     Active Substance: AMLODIPINE BESYLATE
     Indication: HYPERTENSION
     Dosage: 2.5 MG, UNK
     Dates: start: 2001
  3. DIOVAN [Suspect]
     Active Substance: VALSARTAN
     Indication: HYPERTENSION
     Dosage: 80 MG,DAILY
     Dates: start: 2002

REACTIONS (4)
  - Cardiopulmonary failure [Fatal]
  - Electrocardiogram ST segment elevation [Unknown]
  - Chest pain [Fatal]
  - Arteriovenous fistula [Unknown]

NARRATIVE: CASE EVENT DATE: 20021108
